FAERS Safety Report 26139903 (Version 1)
Quarter: 2025Q4

REPORT INFORMATION
  Report Type: Spontaneous
  Country: US (occurrence: None)
  Receive Date: 20251209
  Receipt Date: 20251209
  Transmission Date: 20260117
  Serious: Yes (Other)
  Sender: FDA-CTU
  Company Number: None

PATIENT
  Age: 44 Year
  Sex: Male
  Weight: 72.9 kg

DRUGS (1)
  1. QUETIAPINE [Suspect]
     Active Substance: QUETIAPINE
     Dosage: OTHER QUANTITY : 270 TABLET(S);?FREQUENCY : AT BEDTIME;
     Route: 048
     Dates: end: 20250623

REACTIONS (8)
  - Palpitations [None]
  - Palpitations [None]
  - Dizziness [None]
  - Dizziness [None]
  - Chest pain [None]
  - Dyspnoea [None]
  - Agitation [None]
  - Restlessness [None]

NARRATIVE: CASE EVENT DATE: 20250607
